FAERS Safety Report 18479132 (Version 2)
Quarter: 2020Q4

REPORT INFORMATION
  Report Type: Spontaneous
  Country: US (occurrence: US)
  Receive Date: 20201109
  Receipt Date: 20201112
  Transmission Date: 20210114
  Serious: Yes (Other)
  Sender: FDA-Public Use
  Company Number: US-LUPIN PHARMACEUTICALS INC.-2020-07458

PATIENT
  Age: 83 Year
  Sex: Female
  Weight: 52.15 kg

DRUGS (3)
  1. LISINOPRIL TABLETS [Suspect]
     Active Substance: LISINOPRIL
     Indication: HYPERTENSION
     Dosage: 20 MILLIGRAM, QD
     Route: 048
     Dates: start: 202008, end: 20201008
  2. VITAMINS NOS [Concomitant]
     Active Substance: VITAMINS
     Indication: SUPPLEMENTATION THERAPY
     Dosage: UNK, QD
     Route: 048
  3. LISINOPRIL TABLETS [Suspect]
     Active Substance: LISINOPRIL
     Dosage: 20 MILLIGRAM, BID
     Route: 048
     Dates: start: 20201009

REACTIONS (5)
  - Nausea [Recovering/Resolving]
  - Confusional state [Recovering/Resolving]
  - Blood pressure increased [Recovering/Resolving]
  - Feeling abnormal [Recovering/Resolving]
  - Headache [Not Recovered/Not Resolved]

NARRATIVE: CASE EVENT DATE: 20200926
